FAERS Safety Report 4509273-8 (Version None)
Quarter: 2004Q4

REPORT INFORMATION
  Report Type: 
  Country: None (occurrence: None)
  Receive Date: 20041123
  Receipt Date: 20041115
  Transmission Date: 20050328
  Serious: Yes (Hospitalization)
  Sender: FDA-Public Use
  Company Number: US-MERCK-0411USA02515

PATIENT
  Age: 66 Year
  Sex: Female

DRUGS (8)
  1. VIOXX [Suspect]
     Indication: ARTHRALGIA
     Route: 048
     Dates: start: 19991101, end: 20040930
  2. VIOXX [Suspect]
     Route: 048
     Dates: start: 19991101, end: 20040930
  3. TAMOXIFEN CITRATE [Concomitant]
     Route: 065
  4. FEMARA [Concomitant]
     Route: 065
  5. ATENOLOL [Concomitant]
     Route: 065
  6. NORVASC [Concomitant]
     Route: 065
  7. HYZAAR [Concomitant]
     Route: 065
  8. XANAX [Concomitant]
     Route: 065

REACTIONS (2)
  - BLOOD PRESSURE INCREASED [None]
  - HEART RATE INCREASED [None]
